FAERS Safety Report 10440856 (Version 1)
Quarter: 2014Q3

REPORT INFORMATION
  Report Type: Spontaneous
  Country: US (occurrence: US)
  Receive Date: 20140909
  Receipt Date: 20140909
  Transmission Date: 20150326
  Serious: No
  Sender: FDA-Public Use
  Company Number: US-BAYER-2014-134432

PATIENT
  Age: 79 Year
  Sex: Male
  Weight: 79.37 kg

DRUGS (2)
  1. ALEVE [Suspect]
     Active Substance: NAPROXEN SODIUM
     Indication: PROCEDURAL PAIN
     Dosage: 2 DF IN MORNING AND THEN TWO MORE AT NIGHT
     Route: 048
  2. ALEVE [Suspect]
     Active Substance: NAPROXEN SODIUM
     Indication: PROCEDURAL PAIN
     Dosage: 1 DF, PRN
     Route: 048

REACTIONS (1)
  - Extra dose administered [None]
